FAERS Safety Report 8379626 (Version 4)
Quarter: 2013Q3

REPORT INFORMATION
  Report Type: Report from Study
  Country: US (occurrence: US)
  Receive Date: 20120129
  Receipt Date: 20130726
  Transmission Date: 20140515
  Serious: Yes (Disabling, Other)
  Sender: FDA-Public Use
  Company Number: US-ABBOTT-11P-163-0875786-00

PATIENT
  Age: 29 Year
  Sex: Female

DRUGS (10)
  1. HUMIRA [Suspect]
     Indication: CROHN^S DISEASE
     Dates: start: 201003
  2. PAMELOR [Concomitant]
     Indication: DEPRESSION
  3. PAMELOR [Concomitant]
     Route: 048
  4. RESTORIL [Concomitant]
     Indication: INSOMNIA
     Dosage: AT BEDTIME
  5. ATIVAN [Concomitant]
     Indication: ANXIETY
  6. LEVSIN [Concomitant]
     Indication: MUSCLE SPASMS
  7. PERCOCET [Concomitant]
     Indication: DYSMENORRHOEA
     Dosage: 5/325 MG
  8. PRILOSEC [Concomitant]
     Indication: PRODUCT USED FOR UNKNOWN INDICATION
  9. ZOFRAN [Concomitant]
     Indication: PRODUCT USED FOR UNKNOWN INDICATION
  10. WELCHOL [Concomitant]
     Indication: BILE ACID MALABSORPTION

REACTIONS (10)
  - Breast mass [Not Recovered/Not Resolved]
  - Fatigue [Not Recovered/Not Resolved]
  - Depression [Unknown]
  - Hypoaesthesia [Unknown]
  - Fungal infection [Unknown]
  - Sinusitis [Unknown]
  - Hypothyroidism [Unknown]
  - Autonomic nervous system imbalance [Unknown]
  - Neuropathy peripheral [Unknown]
  - Peptic ulcer [Unknown]
